FAERS Safety Report 8146873-0 (Version None)
Quarter: 2012Q1

REPORT INFORMATION
  Report Type: 
  Country: None (occurrence: None)
  Receive Date: 20120217
  Receipt Date: 20120216
  Transmission Date: 20120608
  Serious: Yes (Life-Threatening, Hospitalization)
  Sender: FDA-Public Use
  Company Number: DE-ABBOTT-12P-062-0893446-00

PATIENT
  Sex: Male
  Weight: 78 kg

DRUGS (4)
  1. METHOTREXATE [Suspect]
     Indication: ANKYLOSING SPONDYLITIS
     Route: 048
     Dates: start: 20110517, end: 20111023
  2. PANTOPRAZOLE [Concomitant]
     Indication: PRODUCT USED FOR UNKNOWN INDICATION
     Route: 048
  3. HUMIRA [Suspect]
     Indication: ANKYLOSING SPONDYLITIS
     Route: 058
     Dates: start: 20100824, end: 20111023
  4. FOLIC ACID [Concomitant]
     Indication: PRODUCT USED FOR UNKNOWN INDICATION
     Route: 048
     Dates: start: 20110517

REACTIONS (17)
  - STRIDOR [None]
  - PYREXIA [None]
  - FEELING ABNORMAL [None]
  - WEIGHT DECREASED [None]
  - POLLAKIURIA [None]
  - DECREASED APPETITE [None]
  - IRIDOCYCLITIS [None]
  - INFECTION [None]
  - HAEMOPTYSIS [None]
  - BRONCHITIS [None]
  - ANAEMIA [None]
  - ENTERITIS [None]
  - SEPSIS [None]
  - GENERAL PHYSICAL HEALTH DETERIORATION [None]
  - HYPONATRAEMIA [None]
  - URINARY TRACT INFECTION [None]
  - OROPHARYNGEAL PAIN [None]
